FAERS Safety Report 12442678 (Version 1)
Quarter: 2016Q2

REPORT INFORMATION
  Report Type: Report from Study
  Country: BR (occurrence: BR)
  Receive Date: 20160607
  Receipt Date: 20160607
  Transmission Date: 20160815
  Serious: Yes (Other)
  Sender: FDA-Public Use
  Company Number: BR-ALEXION PHARMACEUTICALS INC-A201603998

PATIENT
  Age: 37 Year
  Sex: Female

DRUGS (2)
  1. SOLIRIS [Suspect]
     Active Substance: ECULIZUMAB
     Indication: PAROXYSMAL NOCTURNAL HAEMOGLOBINURIA
     Dosage: 600 MG, UNK
     Route: 042
     Dates: start: 20160331, end: 20160420
  2. SOLIRIS [Suspect]
     Active Substance: ECULIZUMAB
     Dosage: 900 MG, UNK
     Route: 042
     Dates: start: 20160426

REACTIONS (8)
  - Stress [Unknown]
  - Apparent death [Not Recovered/Not Resolved]
  - Dermatitis allergic [Not Recovered/Not Resolved]
  - Anxiety [Not Recovered/Not Resolved]
  - Irritability [Not Recovered/Not Resolved]
  - Mood altered [Not Recovered/Not Resolved]
  - Chest pain [Not Recovered/Not Resolved]
  - Pruritus [Unknown]

NARRATIVE: CASE EVENT DATE: 20160428
